FAERS Safety Report 5032205-3 (Version None)
Quarter: 2006Q2

REPORT INFORMATION
  Report Type: 
  Country: None (occurrence: None)
  Receive Date: 20060619
  Receipt Date: 20060607
  Transmission Date: 20061013
  Serious: Yes (Hospitalization, Other)
  Sender: FDA-Public Use
  Company Number: 2006058669

PATIENT
  Age: 75 Year
  Sex: Female
  Weight: 113.3993 kg

DRUGS (2)
  1. CELEBREX [Suspect]
     Indication: ARTHRALGIA
     Dosage: 400 MG (200 MG)
  2. CELEBREX [Suspect]
     Indication: ARTHRITIS
     Dosage: 400 MG (200 MG)

REACTIONS (14)
  - ACUTE MYOCARDIAL INFARCTION [None]
  - ARTHRALGIA [None]
  - BREAST CANCER FEMALE [None]
  - CARDIAC FAILURE CONGESTIVE [None]
  - CHRONIC OBSTRUCTIVE PULMONARY DISEASE [None]
  - CONDITION AGGRAVATED [None]
  - CORONARY ARTERY DISEASE [None]
  - CORONARY ARTERY STENOSIS [None]
  - HYPERTENSION [None]
  - HYPOTENSION [None]
  - MITRAL VALVE INCOMPETENCE [None]
  - PAIN [None]
  - STRESS [None]
  - VENTRICULAR HYPOKINESIA [None]
